FAERS Safety Report 4429275-X (Version None)
Quarter: 2004Q3

REPORT INFORMATION
  Report Type: 
  Country: None (occurrence: None)
  Receive Date: 20040818
  Receipt Date: 20040818
  Transmission Date: 20050211
  Serious: Yes (Life-Threatening)
  Sender: FDA-Public Use
  Company Number: None

PATIENT
  Age: 53 Year
  Sex: Male
  Weight: 73.9363 kg

DRUGS (5)
  1. REMICADE [Suspect]
     Indication: RHEUMATOID ARTHRITIS
     Dates: start: 20020705, end: 20030409
  2. CELEBREX [Concomitant]
  3. METHOTREXATE [Concomitant]
  4. GLUCOTROL [Concomitant]
  5. FOLIC ACID [Concomitant]

REACTIONS (2)
  - HEPATIC ENZYME INCREASED [None]
  - PULMONARY TUBERCULOSIS [None]
